FAERS Safety Report 17288550 (Version 1)
Quarter: 2020Q1

REPORT INFORMATION
  Report Type: Spontaneous
  Country: JP (occurrence: JP)
  Receive Date: 20200120
  Receipt Date: 20200120
  Transmission Date: 20200409
  Serious: Yes (Hospitalization, Other)
  Sender: FDA-Public Use
  Company Number: JP-PFIZER INC-2019518260

PATIENT
  Age: 66 Year
  Sex: Male

DRUGS (2)
  1. INLYTA [Suspect]
     Active Substance: AXITINIB
     Dosage: 4 MG, 2X/DAY
     Route: 048
     Dates: start: 20191023, end: 20191025
  2. INLYTA [Suspect]
     Active Substance: AXITINIB
     Indication: RENAL CELL CARCINOMA
     Dosage: 5 MG, 2X/DAY
     Route: 048
     Dates: start: 20190925, end: 20191022

REACTIONS (18)
  - Blood alkaline phosphatase increased [Unknown]
  - Duodenal ulcer [Unknown]
  - Platelet count decreased [Recovered/Resolved]
  - Blood pressure increased [Recovered/Resolved]
  - Blood bilirubin decreased [Unknown]
  - C-reactive protein increased [Unknown]
  - Haematocrit decreased [Unknown]
  - Lymphocyte percentage decreased [Recovered/Resolved]
  - Haematemesis [Recovered/Resolved]
  - Blood glucose decreased [Recovered/Resolved]
  - Haemoglobin increased [Unknown]
  - Haematocrit increased [Unknown]
  - Protein total decreased [Recovered/Resolved]
  - Blood albumin decreased [Unknown]
  - Blood glucose increased [Recovered/Resolved]
  - Red blood cell count decreased [Unknown]
  - Neutrophil count increased [Unknown]
  - Haemoglobin decreased [Unknown]

NARRATIVE: CASE EVENT DATE: 20190926
